FAERS Safety Report 11592932 (Version 1)
Quarter: 2015Q4

REPORT INFORMATION
  Report Type: Spontaneous
  Country: ES (occurrence: ES)
  Receive Date: 20151005
  Receipt Date: 20151005
  Transmission Date: 20160304
  Serious: Yes (Other)
  Sender: FDA-Public Use
  Company Number: ES-APOTEX-2015AP013183

PATIENT
  Age: 56 Year
  Sex: Female

DRUGS (5)
  1. DULOXETINA APOTEX CAPSULAS DURAS GASTRORRESISTENTES EFG [Suspect]
     Active Substance: DULOXETINE
     Indication: DEPRESSION
     Dosage: 30 MG, UNK
  2. GABAPENTIN. [Suspect]
     Active Substance: GABAPENTIN
     Indication: PRODUCT USED FOR UNKNOWN INDICATION
     Dosage: 2200 MG/DAY, UNK, DOSE REDUCED TO HALF
  3. GABAPENTIN. [Suspect]
     Active Substance: GABAPENTIN
     Dosage: 1100 MG/DAY, UNK,
  4. TRAMADOL RETARD APOTEX [Suspect]
     Active Substance: TRAMADOL
     Indication: PRODUCT USED FOR UNKNOWN INDICATION
  5. AMITRIPTYLINE [Suspect]
     Active Substance: AMITRIPTYLINE
     Indication: PRODUCT USED FOR UNKNOWN INDICATION
     Dosage: 10 MG, UNK

REACTIONS (4)
  - Hallucination, visual [Unknown]
  - Psychotic disorder due to a general medical condition [Unknown]
  - Hypertension [Unknown]
  - Rash pruritic [Recovered/Resolved]
